FAERS Safety Report 9568829 (Version 2)
Quarter: 2013Q3

REPORT INFORMATION
  Report Type: Spontaneous
  Country: US (occurrence: US)
  Receive Date: 20130930
  Receipt Date: 20130930
  Transmission Date: 20140515
  Serious: Yes (Hospitalization)
  Sender: FDA-Public Use
  Company Number: US-AMGEN-USASP2013047701

PATIENT
  Age: 68 Year
  Sex: Female
  Weight: 63.49 kg

DRUGS (6)
  1. ENBREL [Suspect]
     Indication: RHEUMATOID ARTHRITIS
     Dosage: 50 MG EVERY OTHER WEEK
     Route: 058
     Dates: start: 2008, end: 201303
  2. METHOTREXATE [Concomitant]
     Dosage: 2.5 MG, UNK
  3. TRAMADOL [Concomitant]
     Dosage: 50 MG, UNK
  4. FOLIC ACID [Concomitant]
     Dosage: 1 MG, UNK
  5. VITAMIN B COMPLEX WITH VITAMIN C   /02146701/ [Concomitant]
     Dosage: UNK
  6. RECLAST [Concomitant]
     Dosage: 5/100 ML

REACTIONS (10)
  - Pneumonia [Unknown]
  - Injection site bruising [Unknown]
  - Weight decreased [Recovering/Resolving]
  - Decreased appetite [Recovering/Resolving]
  - Insomnia [Recovering/Resolving]
  - Night sweats [Recovering/Resolving]
  - Chills [Recovering/Resolving]
  - Rheumatoid arthritis [Recovering/Resolving]
  - Endoscopy [Unknown]
  - Colonoscopy [Unknown]
